FAERS Safety Report 8880049 (Version 3)
Quarter: 2013Q1

REPORT INFORMATION
  Report Type: Report from Study
  Country: CA (occurrence: CA)
  Receive Date: 20121031
  Receipt Date: 20130207
  Transmission Date: 20140127
  Serious: Yes (Other)
  Sender: FDA-Public Use
  Company Number: CA-UCBSA-050850

PATIENT
  Age: 55 Year
  Sex: Female
  Weight: 72.7 kg

DRUGS (9)
  1. CIMZIA [Suspect]
     Indication: RHEUMATOID ARTHRITIS
     Route: 058
     Dates: start: 20120309, end: 20121002
  2. CIMZIA [Suspect]
     Indication: RHEUMATOID ARTHRITIS
     Dosage: WEEKS 0-2-4
     Route: 058
     Dates: start: 20120127, end: 20120224
  3. VOLTAREN SR [Concomitant]
     Indication: RHEUMATOID ARTHRITIS
     Route: 048
  4. VITAMIN C [Concomitant]
     Indication: VITAMIN SUPPLEMENTATION
     Dosage: DOSE UNKNOWN
     Route: 048
  5. VITAMIN D [Concomitant]
     Indication: VITAMIN SUPPLEMENTATION
     Route: 048
  6. MULTIVITAMIN [Concomitant]
     Indication: VITAMIN SUPPLEMENTATION
     Route: 048
  7. CALCIUM [Concomitant]
     Indication: MINERAL SUPPLEMENTATION
     Route: 048
  8. MAGNESIUM [Concomitant]
     Indication: MINERAL SUPPLEMENTATION
     Route: 048
  9. FLAX SEED OIL [Concomitant]
     Route: 048

REACTIONS (8)
  - Psoriasis [Unknown]
  - Arthritis [Unknown]
  - Eczema [Not Recovered/Not Resolved]
  - Throat irritation [Recovered/Resolved]
  - Cellulitis [Recovering/Resolving]
  - Neutrophil count decreased [Recovered/Resolved]
  - Blister [Not Recovered/Not Resolved]
  - Localised infection [Recovered/Resolved]
